FAERS Safety Report 6240798-3 (Version None)
Quarter: 2009Q2

REPORT INFORMATION
  Report Type: 
  Country: None (occurrence: None)
  Receive Date: 20090619
  Receipt Date: 20090619
  Transmission Date: 20091009
  Serious: Yes (Hospitalization)
  Sender: FDA-Public Use
  Company Number: None

PATIENT
  Sex: Male
  Weight: 58.6 kg

DRUGS (2)
  1. CISPLATIN [Suspect]
     Dosage: 406 MG
  2. ETOPOSIDE [Suspect]
     Dosage: 1524 MG

REACTIONS (7)
  - ANAEMIA [None]
  - DIZZINESS [None]
  - HYPOTENSION [None]
  - LEUKOPENIA [None]
  - NAUSEA [None]
  - THROMBOCYTOPENIA [None]
  - VOMITING [None]
